FAERS Safety Report 17124416 (Version 1)
Quarter: 2019Q4

REPORT INFORMATION
  Report Type: Spontaneous
  Country: NL (occurrence: DE)
  Receive Date: 20191206
  Receipt Date: 20191206
  Transmission Date: 20200122
  Serious: Yes (Hospitalization, Other)
  Sender: FDA-Public Use
  Company Number: DE-FRESENIUS KABI-FK201913356

PATIENT
  Age: 63 Year
  Sex: Male

DRUGS (6)
  1. PACLITAXEL (MANUFACTURER UNKNOWN) [Suspect]
     Active Substance: PACLITAXEL
     Dosage: STRENGTH:100(UNIT NOT PROVIDED), FIRST CYCLE, ONLY DAY 1+15
     Route: 065
     Dates: start: 20190706
  2. CARBOPLATIN (MANUFACTURER UNKNOWN) [Suspect]
     Active Substance: CARBOPLATIN
     Indication: NON-SMALL CELL LUNG CANCER
     Dosage: FIRST CYCLE, AREA UNDER THE CURVE(AUC) 4, WAIVER ON DAY 8
     Route: 065
     Dates: start: 20190706
  3. PACLITAXEL (MANUFACTURER UNKNOWN) [Suspect]
     Active Substance: PACLITAXEL
     Indication: NON-SMALL CELL LUNG CANCER
     Dosage: STRENGTH:100(UNIT NOT PROVIDED), SECOND CYCLE
     Route: 065
     Dates: start: 20190801
  4. ZOLEDRONIC ACID [Concomitant]
     Active Substance: ZOLEDRONIC ACID
     Indication: PRODUCT USED FOR UNKNOWN INDICATION
     Route: 065
  5. CARBOPLATIN (MANUFACTURER UNKNOWN) [Suspect]
     Active Substance: CARBOPLATIN
     Dosage: SECOND CYCLE, AREA UNDER THE CURVE(AUC) 5, ONLY DAY 1
     Route: 065
     Dates: start: 20190801
  6. PEMBROLIZUMAB. [Suspect]
     Active Substance: PEMBROLIZUMAB
     Indication: NON-SMALL CELL LUNG CANCER
     Dosage: CYCLE
     Route: 065
     Dates: start: 20190706, end: 20190801

REACTIONS (3)
  - Malignant neoplasm progression [Unknown]
  - Pulmonary sepsis [Unknown]
  - Pyrexia [Unknown]

NARRATIVE: CASE EVENT DATE: 201907
